FAERS Safety Report 15508048 (Version 6)
Quarter: 2019Q3

REPORT INFORMATION
  Report Type: Spontaneous
  Country: US (occurrence: US)
  Receive Date: 20181016
  Receipt Date: 20190819
  Transmission Date: 20191004
  Serious: Yes (Death, Hospitalization)
  Sender: FDA-Public Use
  Company Number: US-PFIZER INC-2018417371

PATIENT
  Age: 66 Year
  Sex: Female
  Weight: 99 kg

DRUGS (2)
  1. LETROZOLE. [Concomitant]
     Active Substance: LETROZOLE
     Dosage: UNK
  2. IBRANCE [Suspect]
     Active Substance: PALBOCICLIB
     Indication: BREAST CANCER FEMALE
     Dosage: 125 MG, CYCLIC (DAILY FOR 21 DAYS, 7 DAYS OFF OR DAYS 1 TO 21 EVERY 28 DAYS)
     Route: 048
     Dates: start: 20180918, end: 201904

REACTIONS (8)
  - Nausea [Unknown]
  - Skin disorder [Unknown]
  - Liver function test abnormal [Unknown]
  - Small intestinal perforation [Fatal]
  - Abdominal pain upper [Unknown]
  - Diarrhoea [Unknown]
  - Blood potassium decreased [Unknown]
  - Peritonitis [Fatal]

NARRATIVE: CASE EVENT DATE: 2018
